FAERS Safety Report 24424241 (Version 1)
Quarter: 2024Q4

REPORT INFORMATION
  Report Type: Report from Study
  Country: BR (occurrence: BR)
  Receive Date: 20241010
  Receipt Date: 20241010
  Transmission Date: 20250115
  Serious: Yes (Death, Disabling)
  Sender: NOVARTIS
  Company Number: BR-002147023-NVSC2024BR047331

PATIENT
  Sex: Female

DRUGS (5)
  1. KISQALI [Suspect]
     Active Substance: RIBOCICLIB
     Indication: Breast cancer metastatic
     Dosage: 3 DOSAGE FORM, QD
     Route: 065
     Dates: start: 20240105
  2. KISQALI [Suspect]
     Active Substance: RIBOCICLIB
     Indication: Metastases to bone
     Dosage: 3 DOSAGE FORM, QD, DURING 21 DAYS AND 7 DAYS OF BREAK
     Route: 065
  3. KISQALI [Suspect]
     Active Substance: RIBOCICLIB
     Indication: Metastases to liver
  4. METOCLOPRAMIDE HYDROCHLORIDE [Concomitant]
     Active Substance: METOCLOPRAMIDE HYDROCHLORIDE
     Indication: Abdominal pain upper
     Dosage: 1 DOSAGE FORM, QD
     Route: 065
  5. VONAL [Concomitant]
     Indication: Abdominal pain upper
     Dosage: 1 DOSAGE FORM, QD
     Route: 065

REACTIONS (21)
  - Breast cancer metastatic [Fatal]
  - Malignant neoplasm progression [Fatal]
  - Malaise [Fatal]
  - Retching [Fatal]
  - Vomiting [Fatal]
  - Drug ineffective [Fatal]
  - Urinary tract infection [Not Recovered/Not Resolved]
  - Pain [Not Recovered/Not Resolved]
  - Gait inability [Recovered/Resolved]
  - Feeding disorder [Recovered/Resolved]
  - Abdominal discomfort [Not Recovered/Not Resolved]
  - Ageusia [Unknown]
  - Skin exfoliation [Unknown]
  - Burning sensation [Unknown]
  - Weight decreased [Recovering/Resolving]
  - Nausea [Recovering/Resolving]
  - Abdominal pain upper [Not Recovered/Not Resolved]
  - Dry mouth [Unknown]
  - Skin wound [Unknown]
  - Dry skin [Unknown]
  - Pruritus [Not Recovered/Not Resolved]
